FAERS Safety Report 5503199-9 (Version None)
Quarter: 2007Q4

REPORT INFORMATION
  Report Type: 
  Country: None (occurrence: None)
  Receive Date: 20071031
  Receipt Date: 20071023
  Transmission Date: 20080405
  Serious: Yes (Other)
  Sender: FDA-Public Use
  Company Number: FR-AMGEN-US250199

PATIENT
  Sex: Male

DRUGS (3)
  1. ENBREL [Suspect]
     Indication: PSORIASIS
     Dosage: LYOPHILIZED / 25 MG TWICE WEEKLY
     Route: 058
     Dates: start: 20070201, end: 20070801
  2. ENBREL [Suspect]
     Dosage: PREFILLED SYRINGE / 25 MG TWICE WEEKLY
     Route: 058
     Dates: start: 20070901
  3. CALCIUM CHANNEL BLOCKERS [Concomitant]
     Indication: HYPERTENSION
     Dosage: UNKNOWN
     Route: 048

REACTIONS (2)
  - CONFUSIONAL STATE [None]
  - PSORIASIS [None]
